FAERS Safety Report 9035965 (Version 1)
Quarter: 2013Q1

REPORT INFORMATION
  Report Type: Report from Study
  Country: US (occurrence: US)
  Receive Date: 20130129
  Receipt Date: 20130129
  Transmission Date: 20140127
  Serious: No
  Sender: FDA-Public Use
  Company Number: US-ABBOTT-12P-163-0917271-00

PATIENT
  Age: 64 Year
  Sex: Female

DRUGS (5)
  1. HUMIRA 40 MG/0.8 ML PEN [Suspect]
     Indication: PSORIATIC ARTHROPATHY
     Dates: start: 20110912
  2. METHOTREXATE [Concomitant]
     Indication: PSORIASIS
     Dosage: 6 TABS WEEKLY
     Route: 048
  3. ALVESCO [Concomitant]
     Indication: CHRONIC OBSTRUCTIVE PULMONARY DISEASE
     Dosage: 160 MCG, 2 PUFFS DAILY IN AM AND PM
  4. VENTOLIN RESCUE INHALER [Concomitant]
     Indication: CHRONIC OBSTRUCTIVE PULMONARY DISEASE
  5. VITAMIN D [Concomitant]
     Indication: VITAMIN SUPPLEMENTATION
     Dosage: WEEKLY
     Route: 048
     Dates: start: 20110912

REACTIONS (3)
  - Malaise [Recovering/Resolving]
  - Dyspnoea [Unknown]
  - Rhinorrhoea [Unknown]
